FAERS Safety Report 5825312-6 (Version None)
Quarter: 2008Q3

REPORT INFORMATION
  Report Type: 
  Country: None (occurrence: None)
  Receive Date: 20080729
  Receipt Date: 20080402
  Transmission Date: 20090109
  Serious: No
  Sender: FDA-Public Use
  Company Number: US-BAYER-200818882NA

PATIENT
  Age: 50 Year
  Sex: Female
  Weight: 68 kg

DRUGS (5)
  1. MIRENA [Suspect]
     Indication: MENOPAUSAL SYMPTOMS
     Route: 015
     Dates: start: 20080212
  2. TOPAMAX [Concomitant]
  3. LITHIUM CARBONATE [Concomitant]
     Indication: DRUG USE FOR UNKNOWN INDICATION
  4. CARTIA XT [Concomitant]
  5. LEVOTHYROXINE SODIUM [Concomitant]

REACTIONS (1)
  - CONSTIPATION [None]
